FAERS Safety Report 9032150 (Version 1)
Quarter: 2013Q1

REPORT INFORMATION
  Report Type: Spontaneous
  Country: FR (occurrence: FR)
  Receive Date: 20130122
  Receipt Date: 20130122
  Transmission Date: 20140127
  Serious: Yes (Hospitalization)
  Sender: FDA-Public Use
  Company Number: FR-009507513-1301FRA006356

PATIENT
  Age: 50 Year
  Sex: Female

DRUGS (2)
  1. ORGARAN [Suspect]
     Indication: AORTIC THROMBOSIS
  2. ORGARAN [Suspect]
     Indication: HEPARIN-INDUCED THROMBOCYTOPENIA

REACTIONS (3)
  - Gastrointestinal haemorrhage [Recovered/Resolved]
  - Peritoneal haemorrhage [Recovered/Resolved]
  - Prescribed overdose [Recovered/Resolved]
